FAERS Safety Report 7968444-9 (Version None)
Quarter: 2011Q4

REPORT INFORMATION
  Report Type: 
  Country: None (occurrence: None)
  Receive Date: 20111209
  Receipt Date: 20111130
  Transmission Date: 20120403
  Serious: Yes (Other)
  Sender: FDA-Public Use
  Company Number: FR-EISAI INC-E3810-05148-SPO-FR

PATIENT
  Age: 52 Year
  Sex: Female

DRUGS (2)
  1. LANSOPRAZOLE [Concomitant]
     Dates: end: 20110524
  2. RABEPRAZOLE SODIUM [Suspect]
     Route: 048
     Dates: start: 20110524, end: 20111028

REACTIONS (2)
  - MYOCLONUS [None]
  - PARAESTHESIA [None]
